FAERS Safety Report 11105221 (Version 2)
Quarter: 2015Q2

REPORT INFORMATION
  Report Type: Spontaneous
  Country: US (occurrence: US)
  Receive Date: 20150511
  Receipt Date: 20150625
  Transmission Date: 20150821
  Serious: Yes (Other)
  Sender: FDA-Public Use
  Company Number: US-009507513-1505USA001333

PATIENT
  Age: 24 Year
  Sex: Female
  Weight: 62.59 kg

DRUGS (1)
  1. NEXPLANON [Suspect]
     Active Substance: ETONOGESTREL
     Indication: CONTRACEPTION
     Dosage: 68 MG (REPORTED AS TOTAL DAILY DOSE)
     Route: 059
     Dates: start: 20140228

REACTIONS (2)
  - Pain in extremity [Not Recovered/Not Resolved]
  - Implant site pain [Unknown]

NARRATIVE: CASE EVENT DATE: 20150426
